FAERS Safety Report 26196026 (Version 1)
Quarter: 2025Q4

REPORT INFORMATION
  Report Type: Spontaneous
  Country: JP (occurrence: JP)
  Receive Date: 20251224
  Receipt Date: 20251224
  Transmission Date: 20260117
  Serious: Yes (Hospitalization, Other)
  Sender: LEO PHARM
  Company Number: JP-LEO Pharma-385194

PATIENT
  Age: 50 Year
  Sex: Female
  Weight: 91 kg

DRUGS (2)
  1. TACLONEX [Suspect]
     Active Substance: BETAMETHASONE DIPROPIONATE\CALCIPOTRIENE\CALCIPOTRIENE HYDRATE
     Indication: Benign familial pemphigus
     Dosage: INTERMITTENTLY??0.5 MG/G
  2. CLOBETASOL [Concomitant]
     Active Substance: CLOBETASOL
     Indication: Benign familial pemphigus
     Dosage: SIMPLE APPLICATION DOSES OF UP TO 50 G/DAY

REACTIONS (27)
  - Lipohypertrophy [Unknown]
  - Muscular weakness [Unknown]
  - Fatigue [Recovering/Resolving]
  - Oedema peripheral [Recovering/Resolving]
  - Nephrolithiasis [Unknown]
  - Pyrexia [Unknown]
  - Cushing^s syndrome [Unknown]
  - Hypothalamic pituitary adrenal axis suppression [Unknown]
  - Adrenal atrophy [Unknown]
  - Oral candidiasis [Unknown]
  - Neutrophilia [Unknown]
  - Adrenal insufficiency [Unknown]
  - Malaise [Unknown]
  - Osteoporosis [Unknown]
  - Insomnia [Recovering/Resolving]
  - Adrenal insufficiency [Unknown]
  - Cushingoid [Unknown]
  - Hypotension [Unknown]
  - Glucose tolerance impaired [Unknown]
  - Conjunctival hyperaemia [Unknown]
  - Conjunctival hyperaemia [Unknown]
  - Compression fracture [Unknown]
  - Rash [Recovering/Resolving]
  - Hair texture abnormal [Unknown]
  - Skin erosion [Unknown]
  - Skin striae [Unknown]
  - Steroid withdrawal syndrome [Unknown]
